FAERS Safety Report 20615145 (Version 1)
Quarter: 2022Q1

REPORT INFORMATION
  Report Type: Spontaneous
  Country: US (occurrence: US)
  Receive Date: 20220321
  Receipt Date: 20220321
  Transmission Date: 20220423
  Serious: No
  Sender: FDA-Public Use
  Company Number: US-ORGANON-O2203USA000939

PATIENT
  Age: 42 Year
  Sex: Female
  Weight: 185 kg

DRUGS (1)
  1. NEXPLANON [Suspect]
     Active Substance: ETONOGESTREL
     Dosage: 1 IMPLANT EVERY 3 YEARS
     Route: 059
     Dates: start: 20200612

REACTIONS (7)
  - Implant site pain [Unknown]
  - Device breakage [Not Recovered/Not Resolved]
  - Menstrual disorder [Unknown]
  - Muscle spasms [Unknown]
  - Pain [Unknown]
  - Back pain [Unknown]
  - Implant site paraesthesia [Unknown]

NARRATIVE: CASE EVENT DATE: 20220302
